FAERS Safety Report 5849855-4 (Version None)
Quarter: 2008Q3

REPORT INFORMATION
  Report Type: 
  Country: None (occurrence: None)
  Receive Date: 20080819
  Receipt Date: 20080815
  Transmission Date: 20090109
  Serious: Yes (Hospitalization, Other)
  Sender: FDA-Public Use
  Company Number: US-ASTRAZENECA-2006UW19625

PATIENT
  Age: 73 Year
  Sex: Female

DRUGS (15)
  1. ARIMIDEX [Suspect]
     Indication: BREAST CANCER
     Route: 048
     Dates: start: 20050301
  2. EVISTA [Interacting]
     Indication: BONE DENSITY DECREASED
  3. SYNTHROID [Concomitant]
  4. PRILOSEC [Concomitant]
  5. PLAVIX [Concomitant]
  6. CARDIZEM XR [Concomitant]
  7. LIPITOR [Concomitant]
  8. SPIRIVA [Concomitant]
  9. ASMANEX TWISTHALER [Concomitant]
  10. NASONEX [Concomitant]
  11. VITAMIN TAB [Concomitant]
  12. ASPIRIN [Concomitant]
  13. SINGULAIR [Concomitant]
  14. OXYGEN [Concomitant]
  15. BONIVA [Concomitant]
     Route: 042

REACTIONS (12)
  - ALOPECIA [None]
  - BONE PAIN [None]
  - DRUG INTERACTION [None]
  - HYSTERECTOMY [None]
  - MUSCLE SPASMS [None]
  - MUSCULAR WEAKNESS [None]
  - OSTEOARTHRITIS [None]
  - OSTEOPENIA [None]
  - OSTEOPOROSIS [None]
  - PNEUMONIA [None]
  - POSTOPERATIVE ADHESION [None]
  - STAPHYLOCOCCAL INFECTION [None]
